FAERS Safety Report 8150928-4 (Version None)
Quarter: 2012Q1

REPORT INFORMATION
  Report Type: 
  Country: None (occurrence: None)
  Receive Date: 20120220
  Receipt Date: 20120217
  Transmission Date: 20120608
  Serious: Yes (Other)
  Sender: FDA-Public Use
  Company Number: US-SANTEN INC.-INC-11-000016

PATIENT
  Sex: Female
  Weight: 78.088 kg

DRUGS (5)
  1. LOTEMAX [Concomitant]
     Route: 047
     Dates: start: 20110802, end: 20110922
  2. LOTEMAX [Concomitant]
     Route: 047
     Dates: start: 20111011
  3. IBUPROFEN (ADVIL) [Concomitant]
     Route: 048
     Dates: start: 20050101
  4. SIROLIMUS [Suspect]
     Route: 031
     Dates: start: 20110714, end: 20110714
  5. SIROLIMUS [Suspect]
     Route: 031
     Dates: start: 20110916, end: 20110916

REACTIONS (1)
  - IRIDOCYCLITIS [None]
